FAERS Safety Report 16751519 (Version 1)
Quarter: 2019Q3

REPORT INFORMATION
  Report Type: Spontaneous
  Country: US (occurrence: US)
  Receive Date: 20190828
  Receipt Date: 20190828
  Transmission Date: 20191005
  Serious: Yes (Hospitalization)
  Sender: FDA-Public Use
  Company Number: US-ASTRAZENECA-2019SF19441

PATIENT
  Age: 52 Year
  Sex: Female
  Weight: 81.6 kg

DRUGS (16)
  1. SEROQUEL [Suspect]
     Active Substance: QUETIAPINE FUMARATE
     Indication: SLEEP DISORDER
     Route: 048
  2. IPRATROPIUM BROMIDE. [Concomitant]
     Active Substance: IPRATROPIUM BROMIDE
  3. LUNESTA [Suspect]
     Active Substance: ESZOPICLONE
     Indication: SLEEP DISORDER
     Dosage: ESZOPICLONE 3 MG, AS NECESSARY TOOK SPORADICALLY ALTERNATING WITH THE 2 MG, ORAL UNKNOWN
     Route: 048
  4. LUNESTA [Suspect]
     Active Substance: ESZOPICLONE
     Indication: INSOMNIA
     Dosage: ESZOPICLONE 2 MG, AS NECESSARY TOOK SPORADICALLY ALTERNATING WITH THE 3 MG UNKNOWN
     Route: 048
     Dates: start: 20190415
  5. LUNESTA [Suspect]
     Active Substance: ESZOPICLONE
     Indication: SLEEP DISORDER
     Dosage: 2 MG, AS NECESSARY TOOK SPORADICALLY ALTERNATING WITH THE 3 MG, UNKNOWN
     Route: 048
     Dates: start: 20190415
  6. SEROQUEL [Suspect]
     Active Substance: QUETIAPINE FUMARATE
     Indication: AFFECTIVE DISORDER
     Route: 048
  7. LUNESTA [Suspect]
     Active Substance: ESZOPICLONE
     Indication: INSOMNIA
     Dosage: 3.0MG UNKNOWN
     Route: 048
  8. LUNESTA [Suspect]
     Active Substance: ESZOPICLONE
     Indication: INSOMNIA
     Route: 048
     Dates: start: 2015, end: 2016
  9. LUNESTA [Suspect]
     Active Substance: ESZOPICLONE
     Indication: SLEEP DISORDER
     Dosage: 2 MG, 8 PM
     Route: 048
     Dates: start: 2015
  10. EFFEXOR [Concomitant]
     Active Substance: VENLAFAXINE HYDROCHLORIDE
     Dates: start: 2015
  11. LUNESTA [Suspect]
     Active Substance: ESZOPICLONE
     Indication: INSOMNIA
     Dosage: 2 MG, 8 PM
     Route: 048
     Dates: start: 2015
  12. LUNESTA [Suspect]
     Active Substance: ESZOPICLONE
     Indication: SLEEP DISORDER
     Route: 048
     Dates: start: 2015, end: 2016
  13. LUNESTA [Suspect]
     Active Substance: ESZOPICLONE
     Indication: SLEEP DISORDER
     Dosage: 3.0MG UNKNOWN
     Route: 048
  14. LUNESTA [Suspect]
     Active Substance: ESZOPICLONE
     Indication: INSOMNIA
     Dosage: ESZOPICLONE 3 MG, AS NECESSARY TOOK SPORADICALLY ALTERNATING WITH THE 2 MG, ORAL UNKNOWN
     Route: 048
  15. LUNESTA [Suspect]
     Active Substance: ESZOPICLONE
     Indication: SLEEP DISORDER
     Dosage: ESZOPICLONE 2 MG, AS NECESSARY TOOK SPORADICALLY ALTERNATING WITH THE 3 MG UNKNOWN
     Route: 048
     Dates: start: 20190415
  16. LUNESTA [Suspect]
     Active Substance: ESZOPICLONE
     Indication: INSOMNIA
     Dosage: 2 MG, AS NECESSARY TOOK SPORADICALLY ALTERNATING WITH THE 3 MG, UNKNOWN
     Route: 048
     Dates: start: 20190415

REACTIONS (15)
  - Stress [Unknown]
  - Injury [Unknown]
  - Paranoia [Unknown]
  - Feeling abnormal [Not Recovered/Not Resolved]
  - Nausea [Unknown]
  - Therapeutic product effect decreased [Unknown]
  - Middle insomnia [Unknown]
  - Insomnia [Unknown]
  - Psychotic disorder [Not Recovered/Not Resolved]
  - Rapid eye movements sleep abnormal [Unknown]
  - Amnesia [Unknown]
  - Sleep deficit [Unknown]
  - Hangover [Unknown]
  - Sleep apnoea syndrome [Unknown]
  - Drug ineffective [Unknown]
